FAERS Safety Report 5320353-X (Version None)
Quarter: 2007Q2

REPORT INFORMATION
  Report Type: 
  Country: None (occurrence: None)
  Receive Date: 20070509
  Receipt Date: 20070427
  Transmission Date: 20071010
  Serious: Yes (Other)
  Sender: FDA-Public Use
  Company Number: JP-ROCHE-495228

PATIENT
  Sex: Male
  Weight: 9 kg

DRUGS (4)
  1. TAMIFLU [Suspect]
     Dosage: FORM: DRY SYRUP
     Route: 048
     Dates: start: 20070216, end: 20070218
  2. ASVERIN [Concomitant]
     Route: 048
  3. MUCODYNE [Concomitant]
     Dosage: ORAL FORMULATION (NOT OTHERWISE SPECIFIED)
     Route: 048
  4. PERIACTIN [Concomitant]
     Route: 048

REACTIONS (1)
  - LIVER DISORDER [None]
